FAERS Safety Report 11862044 (Version 1)
Quarter: 2015Q4

REPORT INFORMATION
  Report Type: Spontaneous
  Country: US (occurrence: US)
  Receive Date: 20151222
  Receipt Date: 20151222
  Transmission Date: 20160305
  Serious: No
  Sender: FDA-Public Use
  Company Number: US-ROCHE-1155767

PATIENT
  Sex: Male

DRUGS (6)
  1. RIBASPHERE [Suspect]
     Active Substance: RIBAVIRIN
     Dosage: DIVIDED DOSES
     Route: 048
     Dates: end: 20130122
  2. RIBASPHERE [Suspect]
     Active Substance: RIBAVIRIN
     Indication: CHRONIC HEPATITIS C
     Dosage: DIVIDED DOSES
     Route: 048
     Dates: start: 20121114
  3. PEGASYS [Suspect]
     Active Substance: PEGINTERFERON ALFA-2A
     Indication: CHRONIC HEPATITIS C
     Route: 058
     Dates: start: 20121114
  4. TRAMADOL. [Concomitant]
     Active Substance: TRAMADOL
  5. PEGASYS [Suspect]
     Active Substance: PEGINTERFERON ALFA-2A
     Route: 058
     Dates: end: 20130122
  6. NAPROXEN. [Concomitant]
     Active Substance: NAPROXEN

REACTIONS (19)
  - Influenza like illness [Unknown]
  - White blood cell count decreased [Unknown]
  - Hot flush [Unknown]
  - Nasal congestion [Recovering/Resolving]
  - Platelet count decreased [Unknown]
  - Pyrexia [Unknown]
  - Nausea [Unknown]
  - Depression [Unknown]
  - Vomiting [Unknown]
  - Fatigue [Unknown]
  - Anger [Unknown]
  - Upper respiratory tract infection [Not Recovered/Not Resolved]
  - Epistaxis [Recovering/Resolving]
  - Irritability [Unknown]
  - Sluggishness [Unknown]
  - Weight decreased [Unknown]
  - Epistaxis [Not Recovered/Not Resolved]
  - Gastric polyps [Unknown]
  - Red blood cell count decreased [Unknown]
